FAERS Safety Report 12559847 (Version 1)
Quarter: 2016Q3

REPORT INFORMATION
  Report Type: Spontaneous
  Country: US (occurrence: None)
  Receive Date: 20160714
  Receipt Date: 20160714
  Transmission Date: 20161109
  Serious: Yes (Hospitalization, Other)
  Sender: FDA-Public Use
  Company Number: None

PATIENT
  Age: 7 Year
  Sex: Female
  Weight: 29.03 kg

DRUGS (19)
  1. CLONIDINE. [Concomitant]
     Active Substance: CLONIDINE
  2. ZONEGRAN [Concomitant]
     Active Substance: ZONISAMIDE
  3. VITAMIN D3 [Concomitant]
     Active Substance: CHOLECALCIFEROL
  4. FYCOMPA [Suspect]
     Active Substance: PERAMPANEL
     Indication: SEIZURE
     Route: 048
     Dates: start: 20160502, end: 20160608
  5. SUPRELLEN [Concomitant]
  6. COQ10 [Concomitant]
     Active Substance: UBIDECARENONE
  7. ROBINUL [Concomitant]
     Active Substance: GLYCOPYRROLATE
  8. CEPHALEXIN. [Concomitant]
     Active Substance: CEPHALEXIN
  9. VAGAL NERVE STIMULATOR [Concomitant]
     Active Substance: DEVICE
  10. ONFI [Concomitant]
     Active Substance: CLOBAZAM
  11. LEVOCARNITINE. [Concomitant]
     Active Substance: LEVOCARNITINE
  12. FERROUS SULFATE. [Concomitant]
     Active Substance: FERROUS SULFATE
  13. FLOVENT [Concomitant]
     Active Substance: FLUTICASONE PROPIONATE
  14. ALBUTEROL. [Concomitant]
     Active Substance: ALBUTEROL
  15. MIRTAZEPINE [Concomitant]
     Active Substance: MIRTAZAPINE
  16. MELATONIN [Concomitant]
     Active Substance: MELATONIN
  17. RITALIN [Concomitant]
     Active Substance: METHYLPHENIDATE HYDROCHLORIDE
  18. VITAMIN B12 [Concomitant]
     Active Substance: CYANOCOBALAMIN
  19. NEURONTIN [Concomitant]
     Active Substance: GABAPENTIN

REACTIONS (7)
  - Head lag abnormal [None]
  - Speech disorder [None]
  - Anal incontinence [None]
  - Musculoskeletal disorder [None]
  - Muscular weakness [None]
  - Abasia [None]
  - Urinary incontinence [None]

NARRATIVE: CASE EVENT DATE: 20160603
